FAERS Safety Report 23505943 (Version 1)
Quarter: 2024Q1

REPORT INFORMATION
  Report Type: Spontaneous
  Country: US (occurrence: None)
  Receive Date: 20240208
  Receipt Date: 20240208
  Transmission Date: 20240410
  Serious: Yes (Hospitalization)
  Sender: FDA-Public Use
  Company Number: None

PATIENT
  Age: 66 Year
  Sex: Female
  Weight: 68 kg

DRUGS (9)
  1. PAXLOVID [Suspect]
     Active Substance: NIRMATRELVIR\RITONAVIR
     Indication: COVID-19
     Dosage: OTHER QUANTITY : 3 TABLET(S);?FREQUENCY : TWICE A DAY;?
     Route: 048
     Dates: start: 20240201, end: 20240204
  2. escatilopram [Concomitant]
  3. PROLIA [Concomitant]
     Active Substance: DENOSUMAB
  4. MONTELUKAST [Concomitant]
     Active Substance: MONTELUKAST SODIUM
  5. women^s multi vitamin [Concomitant]
  6. VITAMIN D3 [Concomitant]
     Active Substance: CHOLECALCIFEROL
  7. JWH-018 [Concomitant]
     Active Substance: JWH-018
  8. Nascent Iodine [Concomitant]
  9. Proanthocyandinis [Concomitant]

REACTIONS (2)
  - Blood pressure increased [None]
  - Headache [None]

NARRATIVE: CASE EVENT DATE: 20240206
